FAERS Safety Report 6215098-8 (Version None)
Quarter: 2009Q2

REPORT INFORMATION
  Report Type: 
  Country: None (occurrence: None)
  Receive Date: 20090604
  Receipt Date: 20090602
  Transmission Date: 20091009
  Serious: Yes (Hospitalization)
  Sender: FDA-Public Use
  Company Number: US-B.I. PHARMACEUTICALS,INC./RIDGEFIELD-2009-BP-06501BP

PATIENT
  Sex: Female

DRUGS (16)
  1. SPIRIVA [Suspect]
     Indication: CHRONIC OBSTRUCTIVE PULMONARY DISEASE
     Dosage: 18MCG
     Route: 055
     Dates: start: 20060101
  2. SINGULAIR [Concomitant]
     Indication: CHRONIC OBSTRUCTIVE PULMONARY DISEASE
  3. POTASSIUM CHLORIDE [Concomitant]
  4. LISINOPRIL [Concomitant]
     Indication: HYPERTENSION
  5. CARVEDILOL [Concomitant]
  6. LASIX [Concomitant]
     Indication: CARDIAC FAILURE CONGESTIVE
  7. SIMVASTATIN [Concomitant]
     Indication: BLOOD CHOLESTEROL INCREASED
  8. DIGOXIN [Concomitant]
     Indication: CARDIAC FAILURE CONGESTIVE
  9. ATENOLOL [Concomitant]
  10. OXCARBAZEPINE [Concomitant]
  11. COLCHICINE [Concomitant]
     Indication: GOUT
  12. METFORMIN HYDROCHLORIDE [Concomitant]
     Indication: TYPE 2 DIABETES MELLITUS
  13. TRAMADOL HCL [Concomitant]
     Indication: ARTHRITIS
  14. ADVAIR HFA [Concomitant]
     Indication: CHRONIC OBSTRUCTIVE PULMONARY DISEASE
  15. DUONEB [Concomitant]
     Indication: CHRONIC OBSTRUCTIVE PULMONARY DISEASE
  16. COREG [Concomitant]

REACTIONS (4)
  - CARDIAC FAILURE CONGESTIVE [None]
  - DYSPNOEA [None]
  - FLUSHING [None]
  - WEIGHT DECREASED [None]
